FAERS Safety Report 21841529 (Version 4)
Quarter: 2024Q4

REPORT INFORMATION
  Report Type: Report from Study
  Country: US (occurrence: US)
  Receive Date: 20230110
  Receipt Date: 20241209
  Transmission Date: 20250114
  Serious: Yes (Death, Other)
  Sender: ABBVIE
  Company Number: US-ABBVIE-4263749

PATIENT
  Age: 72 Year
  Sex: Female
  Weight: 34.019 kg

DRUGS (1)
  1. CREON [Suspect]
     Active Substance: PANCRELIPASE AMYLASE\PANCRELIPASE LIPASE\PANCRELIPASE PROTEASE
     Indication: Diverticulitis
     Dosage: FORM STRENGTH: 36000 IU (INTERNATIONAL UNIT)
     Route: 048
     Dates: start: 20220121, end: 202406

REACTIONS (6)
  - Cardiac arrest [Fatal]
  - Gastrointestinal disorder [Unknown]
  - Pulmonary mass [Not Recovered/Not Resolved]
  - Chronic obstructive pulmonary disease [Fatal]
  - Blood pressure abnormal [Unknown]
  - Abdominal pain upper [Recovering/Resolving]

NARRATIVE: CASE EVENT DATE: 20240201
